FAERS Safety Report 13881470 (Version 1)
Quarter: 2017Q3

REPORT INFORMATION
  Report Type: Spontaneous
  Country: US (occurrence: US)
  Receive Date: 20170818
  Receipt Date: 20170818
  Transmission Date: 20171127
  Serious: No
  Sender: FDA-Public Use
  Company Number: US-PFIZER INC-2017359115

PATIENT
  Age: 30 Year
  Sex: Female
  Weight: 68.4 kg

DRUGS (2)
  1. XANAX [Suspect]
     Active Substance: ALPRAZOLAM
     Dosage: 1MG TABLET BY MOUTH TWICE A DAY MORNING AND EVENING
  2. XANAX [Suspect]
     Active Substance: ALPRAZOLAM
     Indication: ANXIETY
     Dosage: 0.5 MG, 2X/DAY
     Dates: start: 2014

REACTIONS (1)
  - Drug effect incomplete [Recovered/Resolved]
